FAERS Safety Report 9929958 (Version 1)
Quarter: 2014Q1

REPORT INFORMATION
  Report Type: Spontaneous
  Country: TM (occurrence: TM)
  Receive Date: 20140227
  Receipt Date: 20140227
  Transmission Date: 20141002
  Serious: Yes (Other)
  Sender: FDA-Public Use
  Company Number: PHHY2014TM022136

PATIENT
  Age: 48 Year
  Sex: Female
  Weight: 65 kg

DRUGS (1)
  1. KETONAL [Suspect]
     Indication: BACK PAIN
     Dosage: 1 DF, UNK
     Route: 054
     Dates: start: 20140215, end: 20140217

REACTIONS (2)
  - Anorectal discomfort [Unknown]
  - Insomnia [Unknown]
